FAERS Safety Report 6012353-1 (Version None)
Quarter: 2008Q4

REPORT INFORMATION
  Report Type: 
  Country: None (occurrence: None)
  Receive Date: 20081218
  Receipt Date: 20081202
  Transmission Date: 20090506
  Serious: No
  Sender: FDA-Public Use
  Company Number: US-ASTRAZENECA-2008UW18108

PATIENT
  Age: 787 Month
  Sex: Male
  Weight: 133.8 kg

DRUGS (1)
  1. SYMBICORT [Suspect]
     Indication: ASTHMA
     Route: 055

REACTIONS (2)
  - DYSGEUSIA [None]
  - HYPOGEUSIA [None]
